FAERS Safety Report 20390265 (Version 1)
Quarter: 2022Q1

REPORT INFORMATION
  Report Type: Spontaneous
  Country: US (occurrence: US)
  Receive Date: 20220128
  Receipt Date: 20220128
  Transmission Date: 20220424
  Serious: No
  Sender: FDA-Public Use
  Company Number: US-ALLERGAN-2115237US

PATIENT
  Sex: Female

DRUGS (1)
  1. BOTOX [Suspect]
     Active Substance: ONABOTULINUMTOXINA
     Indication: Torticollis
     Dosage: 100 UNITS, SINGLE
     Dates: start: 202012, end: 202012

REACTIONS (3)
  - Rash erythematous [Unknown]
  - Neck pain [Not Recovered/Not Resolved]
  - Skin swelling [Unknown]
